FAERS Safety Report 5201924-8 (Version None)
Quarter: 2007Q1

REPORT INFORMATION
  Report Type: 
  Country: None (occurrence: None)
  Receive Date: 20070104
  Receipt Date: 20061120
  Transmission Date: 20070707
  Serious: Yes (Hospitalization)
  Sender: FDA-Public Use
  Company Number: 30662

PATIENT
  Age: 87 Year
  Sex: Male

DRUGS (6)
  1. FLECAINIDE ACETATE [Suspect]
     Indication: ARRHYTHMIA
     Dosage: 100 MG (50 MG, 2 IN 1 DAY (S)) ORAL
     Route: 048
  2. BUMETANIDE [Suspect]
     Indication: HYPERTENSION
     Dosage: 0.5 MG (0.5 MG, 1 IN 1 DAYS (S)) ORAL
     Route: 048
     Dates: end: 20060818
  3. PERMIXON (SERENEA REPENS) [Suspect]
     Indication: BENIGN PROSTATIC HYPERPLASIA
     Dosage: 320 MG (160 MG, 2 IN 1 DAY (S)) ORAL
     Route: 048
  4. FOZITEC (FOSINOPRIL) [Suspect]
     Indication: HYPERTENSION
     Dosage: ORAL
     Route: 048
  5. TAMSULOSIN HCL [Suspect]
     Indication: BENIGN PROSTATIC HYPERPLASIA
     Dosage: 0.4 MG (0.4 MG, 1 IN 1 DAY (S)) ORAL
     Route: 048
     Dates: end: 20060909
  6. AGIRAX (MECLOZINE) [Suspect]
     Indication: VERTIGO
     Dosage: 25 MG (25 MG, 1 IN 1 DAY (S)) ORAL
     Route: 048

REACTIONS (1)
  - HYPONATRAEMIA [None]
